FAERS Safety Report 9098085 (Version 1)
Quarter: 2013Q1

REPORT INFORMATION
  Report Type: Report from Study
  Country: JP (occurrence: JP)
  Receive Date: 20130213
  Receipt Date: 20130213
  Transmission Date: 20140127
  Serious: Yes (Other)
  Sender: FDA-Public Use
  Company Number: JP-OTSUKA-JP-2012-16086

PATIENT
  Age: 95 Year
  Sex: Female
  Weight: 37 kg

DRUGS (11)
  1. SAMSCA [Suspect]
     Indication: FLUID RETENTION
     Dosage: 7.5 MG MILLIGRAM(S), QAM
     Route: 048
     Dates: start: 20120728, end: 20120806
  2. LENDORMIN [Concomitant]
     Dosage: 0.25 MG MILLIGRAM(S), DAILY DOSE
     Route: 048
  3. BAYASPIRIN [Concomitant]
     Dosage: 100 MG MILLIGRAM(S), DAILY DOSE
     Route: 048
  4. FLUITRAN [Concomitant]
     Indication: CARDIAC FAILURE
     Dosage: 2 MG MILLIGRAM(S), DAILY DOSE
     Route: 048
  5. LASIX [Concomitant]
     Indication: CARDIAC FAILURE
     Dosage: 40 MG MILLIGRAM(S), DAILY DOSE
     Route: 048
  6. LUPRAC [Concomitant]
     Indication: CARDIAC FAILURE
     Dosage: 12 MG MILLIGRAM(S), DAILY DOSE
     Route: 048
  7. SUNRYTHM [Concomitant]
     Dosage: 50 MG MILLIGRAM(S), DAILY DOSE
     Route: 048
  8. MAGLAX [Concomitant]
     Dosage: 1000 MG MILLIGRAM(S), DAILY DOSE
     Route: 048
  9. KALLIKREIN [Concomitant]
     Dosage: 30 IU, DAILY DOSE
     Route: 048
  10. PANTOSIN [Concomitant]
     Dosage: 2 G GRAM(S), DAILY DOSE
     Route: 048
  11. MYONAL [Concomitant]
     Dosage: 150 MG MILLIGRAM(S), DAILY DOSE
     Route: 048

REACTIONS (2)
  - Blood urea increased [Unknown]
  - Hepatic function abnormal [Recovering/Resolving]
